FAERS Safety Report 16697046 (Version 2)
Quarter: 2019Q4

REPORT INFORMATION
  Report Type: Spontaneous
  Country: US (occurrence: US)
  Receive Date: 20190813
  Receipt Date: 20191226
  Transmission Date: 20200122
  Serious: Yes (Hospitalization, Other)
  Sender: FDA-Public Use
  Company Number: US-PFIZER INC-2019342089

PATIENT
  Age: 55 Year
  Sex: Female

DRUGS (1)
  1. IBRANCE [Suspect]
     Active Substance: PALBOCICLIB
     Indication: BREAST CANCER FEMALE
     Dosage: 125 MG, CYCLIC [ONCE A DAY 21 DAYS ON, 7 OFF]
     Route: 048
     Dates: start: 201906

REACTIONS (19)
  - Oxygen saturation decreased [Unknown]
  - White blood cell count decreased [Unknown]
  - Upper limb fracture [Unknown]
  - Hot flush [Unknown]
  - Fall [Unknown]
  - Headache [Unknown]
  - Rhinorrhoea [Unknown]
  - Loss of consciousness [Unknown]
  - Platelet count decreased [Unknown]
  - Pain in jaw [Unknown]
  - Eye discharge [Unknown]
  - Product dose omission [Unknown]
  - Rib fracture [Unknown]
  - Anaemia [Unknown]
  - Hypotension [Unknown]
  - Pain [Unknown]
  - Alopecia [Recovering/Resolving]
  - Spinal fracture [Unknown]
  - Tumour marker abnormal [Unknown]

NARRATIVE: CASE EVENT DATE: 2019
